FAERS Safety Report 7525068-5 (Version None)
Quarter: 2011Q2

REPORT INFORMATION
  Report Type: 
  Country: None (occurrence: None)
  Receive Date: 20110606
  Receipt Date: 20110603
  Transmission Date: 20111010
  Serious: Yes (Life-Threatening)
  Sender: FDA-Public Use
  Company Number: JP-B.I. PHARMACEUTICALS,INC./RIDGEFIELD-2011-BP-07346NB

PATIENT
  Sex: Female
  Weight: 53 kg

DRUGS (2)
  1. AMLODIPINE [Concomitant]
     Indication: HYPERTENSION
     Dosage: 5 MG
     Route: 048
     Dates: start: 20100423
  2. BI-SIFROL TABLETS [Suspect]
     Indication: RESTLESS LEGS SYNDROME
     Dosage: 0.5 MG
     Route: 048
     Dates: start: 20061201, end: 20110307

REACTIONS (1)
  - BLOOD CREATINE PHOSPHOKINASE INCREASED [None]
